FAERS Safety Report 5177534-8 (Version None)
Quarter: 2006Q4

REPORT INFORMATION
  Report Type: 
  Country: None (occurrence: None)
  Receive Date: 20061218
  Receipt Date: 20060723
  Transmission Date: 20070319
  Serious: No
  Sender: FDA-Public Use
  Company Number: US-AMGEN-KDL187412

PATIENT
  Sex: Female

DRUGS (2)
  1. ENBREL [Suspect]
     Indication: RHEUMATOID ARTHRITIS
     Route: 058
     Dates: start: 20051031
  2. ENBREL [Suspect]
     Indication: SYSTEMIC LUPUS ERYTHEMATOSUS

REACTIONS (2)
  - INJECTION SITE REACTION [None]
  - PERICARDIAL EFFUSION [None]
